FAERS Safety Report 10672223 (Version 4)
Quarter: 2015Q3

REPORT INFORMATION
  Report Type: Report from Study
  Country: GB (occurrence: GB)
  Receive Date: 20141223
  Receipt Date: 20150929
  Transmission Date: 20151125
  Serious: Yes (Hospitalization)
  Sender: FDA-Public Use
  Company Number: GB-NOVOPROD-426100

PATIENT
  Sex: Female
  Weight: 3.9 kg

DRUGS (8)
  1. INSULIN DETEMIR 2.4 MMOL/L [Suspect]
     Active Substance: INSULIN DETEMIR
     Indication: TYPE 1 DIABETES MELLITUS
     Dosage: 42.0 U, QD
     Route: 064
     Dates: end: 20140731
  2. NOVORAPID [Suspect]
     Active Substance: INSULIN ASPART
     Dosage: 66 IU, QD
     Route: 064
     Dates: end: 20140731
  3. VITAMIN D                          /00107901/ [Concomitant]
     Active Substance: ERGOCALCIFEROL
     Indication: PROPHYLAXIS
     Dosage: UNK
     Route: 064
     Dates: end: 20140731
  4. ASPIRIN                            /00002701/ [Concomitant]
     Active Substance: ASPIRIN
     Indication: PROPHYLAXIS
     Dosage: UNK
     Route: 064
     Dates: start: 20140121, end: 20140731
  5. INSULIN DETEMIR 2.4 MMOL/L [Suspect]
     Active Substance: INSULIN DETEMIR
     Dosage: 73 IU, QD
     Route: 064
     Dates: end: 20140731
  6. NOVORAPID [Suspect]
     Active Substance: INSULIN ASPART
     Indication: TYPE 1 DIABETES MELLITUS
     Dosage: 18 U, QD
     Route: 064
     Dates: end: 20140731
  7. VITAMIN D                          /00107901/ [Concomitant]
     Active Substance: ERGOCALCIFEROL
     Dosage: UNK
  8. FOLIC ACID. [Concomitant]
     Active Substance: FOLIC ACID
     Indication: PROPHYLAXIS
     Dosage: UNK
     Route: 064
     Dates: start: 20130320, end: 20140731

REACTIONS (6)
  - Skin infection [Recovered/Resolved]
  - Neonatal respiratory distress syndrome [Recovered/Resolved]
  - Foetal exposure during pregnancy [Recovered/Resolved]
  - Jaundice neonatal [Recovered/Resolved]
  - Hypoglycaemia neonatal [Recovered/Resolved]
  - Hair-thread tourniquet syndrome [Recovered/Resolved]

NARRATIVE: CASE EVENT DATE: 20140731
